FAERS Safety Report 15086433 (Version 1)
Quarter: 2018Q2

REPORT INFORMATION
  Report Type: Report from Study
  Country: US (occurrence: US)
  Receive Date: 20180628
  Receipt Date: 20180628
  Transmission Date: 20180711
  Serious: No
  Sender: FDA-Public Use
  Company Number: US-AMGEN-USASL2017061693

PATIENT
  Age: 64 Year
  Sex: Female

DRUGS (1)
  1. PROLIA [Suspect]
     Active Substance: DENOSUMAB
     Indication: PRODUCT USED FOR UNKNOWN INDICATION
     Dosage: UNK
     Route: 065

REACTIONS (5)
  - Feeling jittery [Not Recovered/Not Resolved]
  - Nausea [Recovered/Resolved]
  - Injection site pain [Not Recovered/Not Resolved]
  - Body temperature decreased [Unknown]
  - Tremor [Recovering/Resolving]

NARRATIVE: CASE EVENT DATE: 20170420
